FAERS Safety Report 8822934 (Version 1)
Quarter: 2012Q4

REPORT INFORMATION
  Report Type: 
  Country: ZA (occurrence: ZA)
  Receive Date: 20121003
  Receipt Date: 20121003
  Transmission Date: 20130627
  Serious: Yes (Hospitalization)
  Sender: FDA-Public Use
  Company Number: ZA-ELI_LILLY_AND_COMPANY-ZA201209008257

PATIENT
  Sex: Female

DRUGS (3)
  1. HUMALOG 25% LISPRO, 75% NPL [Suspect]
     Indication: DIABETES MELLITUS
     Dosage: 19 u, bid
     Route: 058
  2. GLUCOPHAGE [Concomitant]
     Indication: DIABETES MELLITUS
     Dosage: 1000 mg, tid
     Route: 048
  3. PRETERAX [Concomitant]
     Indication: HYPERTENSION
     Dosage: 1 DF, each morning
     Route: 048

REACTIONS (1)
  - Bile duct obstruction [Recovering/Resolving]
